FAERS Safety Report 19351745 (Version 2)
Quarter: 2021Q2

REPORT INFORMATION
  Report Type: Report from Study
  Country: KR (occurrence: KR)
  Receive Date: 20210531
  Receipt Date: 20210604
  Transmission Date: 20210717
  Serious: Yes (Hospitalization)
  Sender: FDA-Public Use
  Company Number: KR-AMGEN-KORCT2021081795

PATIENT
  Age: 41 Year
  Sex: Female

DRUGS (6)
  1. FILGRASTIM [Suspect]
     Active Substance: FILGRASTIM
     Dosage: 1 UNK
     Route: 065
     Dates: start: 20170425, end: 20170425
  2. FILGRASTIM [Suspect]
     Active Substance: FILGRASTIM
     Indication: PRODUCT USED FOR UNKNOWN INDICATION
     Dosage: 1 UNK
     Route: 065
     Dates: start: 20170321, end: 20170321
  3. ERIBULIN [Concomitant]
     Active Substance: ERIBULIN
     Indication: PRODUCT USED FOR UNKNOWN INDICATION
     Dosage: 1.98 UNK
     Dates: start: 20170314
  4. FILGRASTIM [Suspect]
     Active Substance: FILGRASTIM
     Dosage: 1 UNK
     Route: 065
     Dates: start: 20170406, end: 20170406
  5. PROPACETAMOL [Concomitant]
     Active Substance: PROPACETAMOL
     Indication: PRODUCT USED FOR UNKNOWN INDICATION
     Dosage: 1 UNK
     Dates: start: 20170427, end: 20170427
  6. PROPACETAMOL [Concomitant]
     Active Substance: PROPACETAMOL
     Dosage: 2 UNK
     Dates: start: 20170506, end: 20170508

REACTIONS (1)
  - Abdominal pain [Not Recovered/Not Resolved]

NARRATIVE: CASE EVENT DATE: 20170518
